FAERS Safety Report 8415512-3 (Version None)
Quarter: 2012Q2

REPORT INFORMATION
  Report Type: 
  Country: None (occurrence: None)
  Receive Date: 20120606
  Receipt Date: 20120531
  Transmission Date: 20120825
  Serious: Yes (Hospitalization)
  Sender: FDA-Public Use
  Company Number: US-BAYER-2011-072734

PATIENT
  Age: 39 Year
  Sex: Female
  Weight: 66.667 kg

DRUGS (6)
  1. YASMIN [Suspect]
     Dosage: UNK
     Dates: start: 20060106, end: 20061226
  2. METFORMIN HCL [Concomitant]
     Dosage: UNK
     Dates: start: 19950101
  3. YASMIN [Suspect]
     Dosage: UNK
     Dates: start: 20050228, end: 20050906
  4. YASMIN [Suspect]
     Indication: CONTRACEPTION
     Dosage: UNK
     Dates: start: 20041106, end: 20041206
  5. PROZAC [Concomitant]
     Dosage: UNK
  6. SYNTHROID [Concomitant]
     Dosage: UNK
     Dates: start: 19950101

REACTIONS (6)
  - CHEST PAIN [None]
  - INJURY [None]
  - ANHEDONIA [None]
  - ANXIETY [None]
  - DYSPNOEA [None]
  - PULMONARY EMBOLISM [None]
